FAERS Safety Report 24998598 (Version 3)
Quarter: 2025Q1

REPORT INFORMATION
  Report Type: Spontaneous
  Country: US (occurrence: US)
  Receive Date: 20250222
  Receipt Date: 20250307
  Transmission Date: 20250408
  Serious: No
  Sender: SANOFI AVENTIS
  Company Number: US-SANOFI-02406998

PATIENT
  Age: 2 Year
  Sex: Male

DRUGS (1)
  1. DUPIXENT [Suspect]
     Active Substance: DUPILUMAB
     Indication: Dermatitis atopic
     Dosage: 200 MG, QM
     Route: 058
     Dates: start: 2024

REACTIONS (5)
  - Administration site wound [Unknown]
  - Skin discolouration [Unknown]
  - Eczema [Unknown]
  - Incorrect dose administered by device [Unknown]
  - Device use issue [Unknown]
